FAERS Safety Report 5081073-2 (Version None)
Quarter: 2006Q3

REPORT INFORMATION
  Report Type: 
  Country: None (occurrence: None)
  Receive Date: 20060816
  Receipt Date: 20060727
  Transmission Date: 20061208
  Serious: Yes (Hospitalization)
  Sender: FDA-Public Use
  Company Number: JP-BAYER-200610920BYL

PATIENT
  Age: 55 Year
  Sex: Male
  Weight: 74 kg

DRUGS (6)
  1. 8-HOUR BAYER [Suspect]
     Dosage: TOTAL DAILY DOSE: 100 MG  UNIT DOSE: 100 MG
     Route: 048
     Dates: start: 20060701
  2. ARTIST [Suspect]
     Route: 048
     Dates: start: 20060712, end: 20060727
  3. NU-LOTAN [Suspect]
     Route: 048
     Dates: start: 20060712, end: 20060727
  4. LIPITOR [Suspect]
     Route: 048
     Dates: start: 20060712, end: 20060727
  5. OMEPRAZOLE [Suspect]
     Route: 048
     Dates: start: 20060710, end: 20060727
  6. PANALDINE [Concomitant]
     Route: 048
     Dates: start: 20060710

REACTIONS (1)
  - PLATELET COUNT INCREASED [None]
